FAERS Safety Report 9541020 (Version 1)
Quarter: 2013Q3

REPORT INFORMATION
  Report Type: Spontaneous
  Country: DE (occurrence: DE)
  Receive Date: 20130922
  Receipt Date: 20130922
  Transmission Date: 20140515
  Serious: Yes (Other)
  Sender: FDA-Public Use
  Company Number: DE-MYLANLABS-2013S1020247

PATIENT
  Age: 1 Day
  Sex: Male
  Weight: 3.25 kg

DRUGS (5)
  1. LAMOTRIGINE [Suspect]
     Dosage: 200 [MG/D ]
     Route: 064
     Dates: start: 20090619, end: 20100316
  2. TREVILOR [Suspect]
     Dosage: 225 [MG/D ]
     Route: 064
     Dates: start: 20090619, end: 20100316
  3. PROMETHAZIN NEURAXPHARM [Suspect]
     Dosage: 25 [MG/D ]
     Route: 064
     Dates: start: 20090619, end: 20100316
  4. L-THYROXIN [Concomitant]
     Route: 064
     Dates: start: 20090619, end: 20100316
  5. FOLIO FORTE [Concomitant]
     Indication: PROPHYLAXIS OF NEURAL TUBE DEFECT
     Route: 064
     Dates: start: 20090701

REACTIONS (4)
  - Neonatal respiratory distress syndrome [Recovered/Resolved]
  - Drug withdrawal syndrome neonatal [Recovered/Resolved]
  - Bradycardia neonatal [Recovered/Resolved]
  - Exposure during pregnancy [Recovered/Resolved]
